FAERS Safety Report 17807953 (Version 1)
Quarter: 2020Q2

REPORT INFORMATION
  Report Type: Spontaneous
  Country: US (occurrence: US)
  Receive Date: 20200520
  Receipt Date: 20200520
  Transmission Date: 20200714
  Serious: No
  Sender: FDA-Public Use
  Company Number: US-HORIZON-DUE-VIM-0155-2020

PATIENT
  Age: 55 Year
  Sex: Male

DRUGS (2)
  1. DUEXIS [Suspect]
     Active Substance: FAMOTIDINE\IBUPROFEN
     Indication: PAIN
  2. VIMOVO [Suspect]
     Active Substance: ESOMEPRAZOLE MAGNESIUM\NAPROXEN
     Indication: INFLAMMATION
     Dates: start: 201906

REACTIONS (4)
  - Inflammation [Unknown]
  - Off label use [Recovered/Resolved]
  - Arthralgia [Unknown]
  - Intentional product use issue [Not Recovered/Not Resolved]
